FAERS Safety Report 17146342 (Version 1)
Quarter: 2019Q4

REPORT INFORMATION
  Report Type: Spontaneous
  Country: NL (occurrence: NL)
  Receive Date: 20191212
  Receipt Date: 20191212
  Transmission Date: 20200122
  Serious: Yes (Other)
  Sender: FDA-Public Use
  Company Number: NL-MYLANLABS-2019M1121516

PATIENT
  Age: 72 Year
  Sex: Male
  Weight: 79.3 kg

DRUGS (10)
  1. PLANTAGO OVATA [Concomitant]
     Active Substance: HERBALS\PLANTAGO OVATA LEAF
     Dosage: 1 SACHET, ORAAL, 2DD
     Route: 048
  2. VITAMIN D3 [Concomitant]
     Active Substance: CHOLECALCIFEROL
     Dosage: 1 TABLET, ORAAL, 1DD
     Route: 048
  3. CARBASTAL [Concomitant]
     Dosage: 300MG, ORAAL, 1DD
     Route: 048
  4. PARACETAMOL [Concomitant]
     Active Substance: ACETAMINOPHEN
     Dosage: 1.000MG, ORAAL 2DD ZN
     Route: 048
  5. MOVICOLON [Concomitant]
     Active Substance: POLYETHYLENE GLYCOL 3350\POTASSIUM CHLORIDE\SODIUM BICARBONATE\SODIUM CHLORIDE
     Dosage: 1SACHET, ORAAL,2DD ZN/POWDER FOR DRINK
     Route: 048
  6. CLOPIDOGREL [Concomitant]
     Active Substance: CLOPIDOGREL BISULFATE
     Dosage: 75MG, ORAAL, 1DD
     Route: 048
  7. ATORVASTATINE                      /01326101/ [Concomitant]
     Active Substance: ATORVASTATIN
     Dosage: 40MG, ORAAL, 1DD
     Route: 048
  8. PANTOPRAZOL                        /01263201/ [Concomitant]
     Active Substance: PANTOPRAZOLE
     Dosage: 40MG, ORAAL, 1DD
     Route: 048
  9. HYDROCHLOORTHIAZIDE MYLAN [Suspect]
     Active Substance: HYDROCHLOROTHIAZIDE
     Indication: TRANSIENT ISCHAEMIC ATTACK
     Dosage: 1X PER DAG 1 STUK
     Route: 048
     Dates: start: 20190921, end: 20191007
  10. TIOTROPIUM [Concomitant]
     Active Substance: TIOTROPIUM
     Dosage: 18 MCG, INHALATIE, 1DD/INHALATION CAPSULE
     Route: 055

REACTIONS (2)
  - Hypokalaemia [Recovering/Resolving]
  - Orthostatic hypotension [Recovering/Resolving]

NARRATIVE: CASE EVENT DATE: 20191007
